FAERS Safety Report 24358491 (Version 1)
Quarter: 2024Q3

REPORT INFORMATION
  Report Type: Spontaneous
  Country: US (occurrence: None)
  Receive Date: 20240924
  Receipt Date: 20240924
  Transmission Date: 20241016
  Serious: Yes (Hospitalization)
  Sender: Public
  Company Number: None

PATIENT
  Sex: Male

DRUGS (3)
  1. HUMIRA [Suspect]
     Active Substance: ADALIMUMAB
     Indication: Rheumatoid arthritis
     Dosage: 40MG  EVERY 14 DAYS SUB-Q?
     Route: 058
     Dates: start: 202104
  2. STEROIDS [Concomitant]
  3. ANTIBIOTICS [Concomitant]

REACTIONS (2)
  - COVID-19 [None]
  - Pneumonia [None]
